FAERS Safety Report 25014358 (Version 1)
Quarter: 2025Q1

REPORT INFORMATION
  Report Type: Spontaneous
  Country: CN (occurrence: CN)
  Receive Date: 20250226
  Receipt Date: 20250226
  Transmission Date: 20250409
  Serious: Yes (Hospitalization)
  Sender: PFIZER
  Company Number: CN-PFIZER INC-PV202500023303

PATIENT
  Age: 7 Month
  Sex: Female
  Weight: 8.7 kg

DRUGS (3)
  1. EPIRUBICIN [Suspect]
     Active Substance: EPIRUBICIN
     Indication: Retroperitoneal cancer
     Dosage: 7 MG, 1X/DAY
     Route: 041
     Dates: start: 20250130, end: 20250201
  2. CYCLOPHOSPHAMIDE [Suspect]
     Active Substance: CYCLOPHOSPHAMIDE
     Indication: Retroperitoneal cancer
     Dosage: 0.65 G, 1X/DAY
     Route: 041
     Dates: start: 20250130, end: 20250130
  3. VINCRISTINE SULFATE [Suspect]
     Active Substance: VINCRISTINE SULFATE
     Indication: Retroperitoneal cancer
     Dosage: 0.14 MG, 1X/DAY
     Route: 041
     Dates: start: 20250130, end: 20250130

REACTIONS (1)
  - Myelosuppression [Recovering/Resolving]

NARRATIVE: CASE EVENT DATE: 20250206
